FAERS Safety Report 9890723 (Version 1)
Quarter: 2014Q1

REPORT INFORMATION
  Report Type: Spontaneous
  Country: US (occurrence: None)
  Receive Date: 20140210
  Receipt Date: 20140210
  Transmission Date: 20141002
  Serious: No
  Sender: FDA-Public Use
  Company Number: None

PATIENT
  Age: 36 Year
  Sex: Female
  Weight: 55.79 kg

DRUGS (1)
  1. CIPRO 500 MG [Suspect]
     Indication: URINARY TRACT INFECTION
     Dosage: 1 PILL  BID ORAL
     Route: 048
     Dates: start: 20140207, end: 20140208

REACTIONS (3)
  - Hypoaesthesia [None]
  - Hypoaesthesia [None]
  - Paraesthesia [None]
